FAERS Safety Report 11628111 (Version 1)
Quarter: 2015Q4

REPORT INFORMATION
  Report Type: Spontaneous
  Country: TR (occurrence: TR)
  Receive Date: 20151014
  Receipt Date: 20151014
  Transmission Date: 20160304
  Serious: Yes (Other)
  Sender: FDA-Public Use
  Company Number: TR-BIOTEST-T 687/15

PATIENT
  Sex: Female
  Weight: 3.35 kg

DRUGS (1)
  1. IVIG US [Suspect]
     Active Substance: HUMAN IMMUNOGLOBULIN G
     Indication: RHESUS INCOMPATIBILITY
     Dosage: 1 G/KG OVER 4 HOUR

REACTIONS (1)
  - Supraventricular tachycardia [Recovering/Resolving]
